FAERS Safety Report 7678499-7 (Version None)
Quarter: 2011Q3

REPORT INFORMATION
  Report Type: 
  Country: None (occurrence: None)
  Receive Date: 20110811
  Receipt Date: 20110803
  Transmission Date: 20111222
  Serious: Yes (Death)
  Sender: FDA-Public Use
  Company Number: US-BAXTER-2011BH025581

PATIENT
  Sex: Female

DRUGS (1)
  1. HEPARIN SODIUM INJECTION [Suspect]
     Indication: INTRA-CEREBRAL ANEURYSM OPERATION
     Route: 042

REACTIONS (1)
  - POST PROCEDURAL HAEMORRHAGE [None]
